FAERS Safety Report 16934950 (Version 3)
Quarter: 2020Q2

REPORT INFORMATION
  Report Type: Report from Study
  Country: US (occurrence: US)
  Receive Date: 20191018
  Receipt Date: 20200626
  Transmission Date: 20200713
  Serious: Yes (Hospitalization, Other)
  Sender: FDA-Public Use
  Company Number: US-ROCHE-2437816

PATIENT
  Age: 62 Year
  Sex: Male

DRUGS (4)
  1. OMNICEF [Concomitant]
     Active Substance: CEFDINIR
  2. OCREVUS [Suspect]
     Active Substance: OCRELIZUMAB
     Indication: RELAPSING MULTIPLE SCLEROSIS
     Dosage: ONGOING:YES
     Route: 065
     Dates: start: 20180302
  3. AUBAGIO [Concomitant]
     Active Substance: TERIFLUNOMIDE
  4. OCREVUS [Suspect]
     Active Substance: OCRELIZUMAB
     Dosage: DATE OF TREATMENT: 02-MAR-2018, 16-MAR-2018, 21-SEP-2018, 10-APR-2019, 23-OCT-2019
     Route: 042
     Dates: start: 2018

REACTIONS (4)
  - Neurogenic bladder [Unknown]
  - Tremor [Not Recovered/Not Resolved]
  - Sepsis [Unknown]
  - Urinary tract infection [Recovering/Resolving]

NARRATIVE: CASE EVENT DATE: 20190106
